FAERS Safety Report 5403736-9 (Version None)
Quarter: 2007Q3

REPORT INFORMATION
  Report Type: 
  Country: None (occurrence: None)
  Receive Date: 20070713
  Receipt Date: 20070514
  Transmission Date: 20080115
  Serious: Yes (Hospitalization)
  Sender: FDA-Public Use
  Company Number: REM_00358_2007

PATIENT
  Age: 66 Year
  Sex: Female

DRUGS (17)
  1. REMODULIN [Suspect]
     Indication: PULMONARY HYPERTENSION
     Dosage: 26 NG/KG/MIN (0.026 UG/KG,1 IN 1 MIN),INTRAVENOUS
     Route: 042
     Dates: start: 20070109
  2. SILDENAFIL CITRATE [Concomitant]
  3. PREDNISONE TAB [Concomitant]
  4. SYNTHROID [Concomitant]
  5. BENZONATATE [Concomitant]
  6. POTASSIUM CHLORIDE [Concomitant]
  7. FUROSEMIDE [Concomitant]
  8. ACTIMMUNE (INTERFERON GAMMA) [Concomitant]
  9. ACETYLCYSTEINE [Concomitant]
  10. PRILOSEC [Concomitant]
  11. PREMPRO 14/14 [Concomitant]
  12. FOSAMAX [Concomitant]
  13. OXYCODONE HCL [Concomitant]
  14. ADVIL [Concomitant]
  15. IRON (IRON) [Concomitant]
  16. ACETAMINOPHEN [Concomitant]
  17. MULTIVITAMIN (MULTIVITAMIN) [Concomitant]

REACTIONS (3)
  - CATHETER RELATED INFECTION [None]
  - CENTRAL LINE INFECTION [None]
  - PSEUDOMONAL SEPSIS [None]
